FAERS Safety Report 18693308 (Version 3)
Quarter: 2021Q2

REPORT INFORMATION
  Report Type: Spontaneous
  Country: KR (occurrence: KR)
  Receive Date: 20210104
  Receipt Date: 20210517
  Transmission Date: 20210717
  Serious: Yes (Hospitalization, Other)
  Sender: FDA-Public Use
  Company Number: KR-ROCHE-2743340

PATIENT
  Age: 47 Year
  Sex: Female

DRUGS (21)
  1. VINCRISTINE [Suspect]
     Active Substance: VINCRISTINE
     Indication: FOLLICULAR LYMPHOMA
     Route: 065
     Dates: start: 20151023, end: 20160203
  2. PREDNISONE. [Suspect]
     Active Substance: PREDNISONE
     Indication: FOLLICULAR LYMPHOMA
     Route: 065
     Dates: start: 20151023, end: 20160203
  3. IDARUBICIN [Suspect]
     Active Substance: IDARUBICIN
     Indication: PRODUCT USED FOR UNKNOWN INDICATION
     Route: 042
     Dates: start: 20190313, end: 20190819
  4. ARAVA [Suspect]
     Active Substance: LEFLUNOMIDE
     Indication: PRODUCT USED FOR UNKNOWN INDICATION
     Route: 065
     Dates: start: 20201222
  5. VALCYTE [Concomitant]
     Active Substance: VALGANCICLOVIR HYDROCHLORIDE
  6. FOSCAVIR [Concomitant]
     Active Substance: FOSCARNET SODIUM
  7. BENDAMUSTINE [Suspect]
     Active Substance: BENDAMUSTINE
     Indication: FOLLICULAR LYMPHOMA
     Route: 065
     Dates: start: 20200506, end: 20200817
  8. CYMEVENE [Suspect]
     Active Substance: GANCICLOVIR
     Indication: CYTOMEGALOVIRUS INFECTION
     Dosage: NEXT TREATMENT ON 24/NOV/2020, 05/DEC/2020, 11/DEC/2020, 18/DEC/2020, 25/DEC/2020 AND 01/JAN/2021
     Route: 042
     Dates: start: 20201105, end: 20201109
  9. CYMEVENE [Suspect]
     Active Substance: GANCICLOVIR
     Dosage: NEXT TREATMENT ON 24/NOV/2020, 05/DEC/2020, 11/DEC/2020, 18/DEC/2020, 25/DEC/2020 AND 01/JAN/2021
     Route: 042
     Dates: start: 20201222
  10. RITUXIMAB. [Suspect]
     Active Substance: RITUXIMAB
     Indication: FOLLICULAR LYMPHOMA
     Route: 065
     Dates: start: 20151023, end: 20160629
  11. DEXAMETHASONE. [Suspect]
     Active Substance: DEXAMETHASONE
     Indication: PRODUCT USED FOR UNKNOWN INDICATION
     Route: 065
     Dates: start: 20170514, end: 20171011
  12. AMPHOTERICIN B. [Concomitant]
     Active Substance: AMPHOTERICIN B
  13. GAZYVA [Suspect]
     Active Substance: OBINUTUZUMAB
     Indication: B-CELL LYMPHOMA RECURRENT
  14. BENDAMUSTINE [Suspect]
     Active Substance: BENDAMUSTINE
     Indication: B-CELL LYMPHOMA RECURRENT
  15. AMBISOME [Concomitant]
     Active Substance: AMPHOTERICIN B
  16. GAZYVA [Suspect]
     Active Substance: OBINUTUZUMAB
     Indication: FOLLICULAR LYMPHOMA
     Route: 042
     Dates: start: 20200506, end: 20200817
  17. CIDOFOVIR. [Concomitant]
     Active Substance: CIDOFOVIR
  18. CYCLOPHOSPHAMIDE. [Suspect]
     Active Substance: CYCLOPHOSPHAMIDE
     Indication: FOLLICULAR LYMPHOMA
     Route: 065
     Dates: start: 20151023, end: 20160203
  19. FLUDARABINE [Suspect]
     Active Substance: FLUDARABINE PHOSPHATE
     Indication: PRODUCT USED FOR UNKNOWN INDICATION
     Route: 065
     Dates: start: 20170514, end: 20171011
  20. MITOXANTRONE [Suspect]
     Active Substance: MITOXANTRONE HYDROCHLORIDE
     Indication: PRODUCT USED FOR UNKNOWN INDICATION
     Route: 065
     Dates: start: 20170514, end: 20171011
  21. RETINOIC ACID [Suspect]
     Active Substance: TRETINOIN
     Indication: PRODUCT USED FOR UNKNOWN INDICATION
     Route: 048
     Dates: start: 20190313, end: 20190819

REACTIONS (7)
  - Pneumonia cytomegaloviral [Unknown]
  - Nausea [Unknown]
  - Cytomegalovirus colitis [Unknown]
  - Pyrexia [Unknown]
  - Cytomegalovirus chorioretinitis [Unknown]
  - Dyspnoea [Not Recovered/Not Resolved]
  - Cytomegalovirus infection [Not Recovered/Not Resolved]

NARRATIVE: CASE EVENT DATE: 20201223
